FAERS Safety Report 5198912-7 (Version None)
Quarter: 2007Q1

REPORT INFORMATION
  Report Type: 
  Country: None (occurrence: None)
  Receive Date: 20070104
  Receipt Date: 20061227
  Transmission Date: 20070707
  Serious: Yes (Life-Threatening, Hospitalization)
  Sender: FDA-Public Use
  Company Number: TW-BRISTOL-MYERS SQUIBB COMPANY-13507207

PATIENT
  Age: 81 Year
  Sex: Male
  Weight: 63 kg

DRUGS (14)
  1. CISPLATIN [Suspect]
     Indication: NON-SMALL CELL LUNG CANCER
     Route: 042
     Dates: start: 20060614, end: 20060816
  2. PF-3512676 [Suspect]
     Indication: NON-SMALL CELL LUNG CANCER
     Route: 058
     Dates: start: 20060824, end: 20060824
  3. GEMCITABINE [Suspect]
     Indication: NON-SMALL CELL LUNG CANCER
     Route: 042
     Dates: start: 20060614, end: 20060816
  4. ACETAMINOPHEN [Concomitant]
     Route: 048
     Dates: start: 20060809, end: 20060816
  5. FUROSEMIDE [Concomitant]
     Route: 042
     Dates: start: 20060809, end: 20060905
  6. DEXAMETHASONE [Concomitant]
     Route: 042
     Dates: start: 20060809, end: 20060816
  7. GRANISETRON [Concomitant]
     Route: 042
     Dates: start: 20060809, end: 20060809
  8. PROCHLORPERAZINE [Concomitant]
     Route: 042
     Dates: start: 20060809, end: 20060809
  9. DOXAZOSIN MESYLATE [Concomitant]
     Route: 048
     Dates: start: 20060809, end: 20060830
  10. METOCLOPRAMIDE [Concomitant]
     Route: 048
     Dates: start: 20060816, end: 20060820
  11. MEGESTROL ACETATE [Concomitant]
     Route: 048
     Dates: start: 20060809, end: 20060830
  12. BIPERIDEN HYDROCHLORIDE TAB [Concomitant]
     Route: 048
     Dates: start: 20060816, end: 20060816
  13. LORAZEPAM [Concomitant]
     Route: 048
     Dates: start: 20060816, end: 20060916
  14. CHLORPHENIRAMINE MALEATE [Concomitant]
     Route: 048
     Dates: start: 20060823, end: 20060826

REACTIONS (4)
  - NEUTROPENIA [None]
  - RESPIRATORY FAILURE [None]
  - SEPTIC SHOCK [None]
  - THROMBOCYTOPENIA [None]
